FAERS Safety Report 24211808 (Version 1)
Quarter: 2024Q3

REPORT INFORMATION
  Report Type: Spontaneous
  Country: US (occurrence: US)
  Receive Date: 20240814
  Receipt Date: 20240814
  Transmission Date: 20241017
  Serious: No
  Sender: INSUD PHARMA
  Company Number: US-INSUD PHARMA-2407US06092

PATIENT

DRUGS (1)
  1. PROGESTERONE [Suspect]
     Active Substance: PROGESTERONE
     Indication: Product used for unknown indication
     Dosage: UNKNOWN

REACTIONS (6)
  - Presyncope [Unknown]
  - Feeling abnormal [Unknown]
  - Dizziness [Unknown]
  - Poor quality product administered [Unknown]
  - Product quality issue [Unknown]
  - Product odour abnormal [Unknown]
